FAERS Safety Report 8549249-7 (Version None)
Quarter: 2012Q3

REPORT INFORMATION
  Report Type: 
  Country: None (occurrence: None)
  Receive Date: 20120730
  Receipt Date: 20120726
  Transmission Date: 20120928
  Serious: Yes (Other)
  Sender: FDA-Public Use
  Company Number: PHHY2010AT40439

PATIENT
  Sex: Male

DRUGS (11)
  1. PANTOPRAZOLE SODIUM [Concomitant]
     Dosage: 40 MG, UNK
  2. CORTISONE ACETATE [Concomitant]
     Dosage: 5 MG, QD
  3. SPIRIVA [Concomitant]
     Dosage: UNK UKN, UNK
  4. TAMSULOSIN HYDROCHLORIDE [Concomitant]
     Dosage: UNK UKN, UNK
  5. URSO FALK [Concomitant]
     Dosage: UNK UKN, UNK
  6. CERTICAN [Suspect]
     Dosage: 0.75 MG 2X DAILY
  7. VALTREX [Concomitant]
     Dosage: UNK UKN, UNK
  8. VALCYTE [Concomitant]
     Dosage: UNK UKN, UNK
  9. CERTICAN [Suspect]
     Indication: LIVER TRANSPLANT
     Dosage: 0.5 MG 2X1 DAILY
  10. NEORAL [Suspect]
     Indication: LIVER TRANSPLANT
     Dosage: 25 MG, BID
  11. MYFORTIC [Suspect]
     Indication: LIVER TRANSPLANT
     Dosage: UNK UKN, UNK

REACTIONS (12)
  - TACHYCARDIA [None]
  - MUSCLE SPASMS [None]
  - SUPRAVENTRICULAR EXTRASYSTOLES [None]
  - VENOUS THROMBOSIS LIMB [None]
  - OEDEMA PERIPHERAL [None]
  - TREMOR [None]
  - FATIGUE [None]
  - MYALGIA [None]
  - VERTIGO [None]
  - SLEEP DISORDER [None]
  - HYPERHIDROSIS [None]
  - COAGULOPATHY [None]
